FAERS Safety Report 18572703 (Version 1)
Quarter: 2020Q4

REPORT INFORMATION
  Report Type: Report from Study
  Country: IT (occurrence: IT)
  Receive Date: 20201203
  Receipt Date: 20201203
  Transmission Date: 20210114
  Serious: Yes (Other)
  Sender: FDA-Public Use
  Company Number: IT-JNJFOC-20201152217

PATIENT

DRUGS (3)
  1. METHOTREXATE. [Concomitant]
     Active Substance: METHOTREXATE
  2. 5-ASA [Concomitant]
     Active Substance: MESALAMINE
  3. SIMPONI [Suspect]
     Active Substance: GOLIMUMAB
     Indication: COLITIS ULCERATIVE
     Route: 058

REACTIONS (13)
  - Drug ineffective [Unknown]
  - Respiratory tract infection [Unknown]
  - Basal cell carcinoma [Unknown]
  - Rash [Unknown]
  - Gastroenteritis [Unknown]
  - Therapeutic response decreased [Unknown]
  - Injection site reaction [Unknown]
  - Psoriasis [Unknown]
  - Oral papilloma [Unknown]
  - Cytomegalovirus infection reactivation [Unknown]
  - Oropharyngeal candidiasis [Unknown]
  - Genitourinary tract infection [Unknown]
  - Eczema [Unknown]
